FAERS Safety Report 11223193 (Version 2)
Quarter: 2019Q3

REPORT INFORMATION
  Report Type: Report from Study
  Country: SE (occurrence: SE)
  Receive Date: 20150626
  Receipt Date: 20190719
  Transmission Date: 20191004
  Serious: Yes (Hospitalization)
  Sender: FDA-Public Use
  Company Number: SE-BRISTOL-MYERS SQUIBB COMPANY-BMS-2015-040879

PATIENT
  Age: 63 Year
  Sex: Female

DRUGS (13)
  1. FOLACIN                            /00024201/ [Concomitant]
     Active Substance: FOLIC ACID
     Indication: ARTHRALGIA
     Route: 065
  2. SOBRIL [Concomitant]
     Active Substance: OXAZEPAM
     Indication: ANXIETY
     Dosage: 10 MG, PRN
     Route: 065
     Dates: start: 20130719
  3. MADOPARK [Concomitant]
     Active Substance: BENSERAZIDE HYDROCHLORIDE\LEVODOPA
     Indication: PRODUCT USED FOR UNKNOWN INDICATION
     Dosage: 1 DF, TID
     Route: 065
     Dates: start: 20130705
  4. NAPROXEN ORIFARM [Concomitant]
     Active Substance: NAPROXEN
     Indication: ARTHRALGIA
     Route: 065
  5. NAPROXEN ORIFARM [Concomitant]
     Active Substance: NAPROXEN
     Indication: MYALGIA
     Dosage: 500 MG, QD
     Route: 065
     Dates: start: 20150525
  6. BLINDED ABATACEPT [Suspect]
     Active Substance: ABATACEPT
     Indication: RHEUMATOID ARTHRITIS
     Dosage: UNK
     Route: 058
     Dates: start: 20140219
  7. FLUOXETIN [Concomitant]
     Active Substance: FLUOXETINE HYDROCHLORIDE
     Indication: PRODUCT USED FOR UNKNOWN INDICATION
     Dosage: 20 MG, BID
     Route: 065
     Dates: start: 20130705
  8. ATARAX [Concomitant]
     Active Substance: HYDROXYZINE HYDROCHLORIDE
     Indication: ANXIETY
     Dosage: 25 MG, PRN
     Route: 065
     Dates: start: 20140314
  9. METHOTREXATE SODIUM. [Suspect]
     Active Substance: METHOTREXATE SODIUM
     Indication: RHEUMATOID ARTHRITIS
     Dosage: 2.5 MG, UNK
     Route: 065
     Dates: start: 20140219
  10. FOLACIN                            /00024201/ [Concomitant]
     Active Substance: FOLIC ACID
     Indication: MYALGIA
     Dosage: 5 MG, Q2WK
     Route: 065
     Dates: start: 20140219
  11. OXYCODONE [Concomitant]
     Active Substance: OXYCODONE
     Indication: PRODUCT USED FOR UNKNOWN INDICATION
     Dosage: 5 MG, BID
     Route: 065
     Dates: start: 20150605
  12. DICLOFENAC MYLAN [Concomitant]
     Active Substance: DICLOFENAC SODIUM
     Indication: PAIN
     Dosage: 50 MG, PRN
     Route: 065
     Dates: start: 20140212
  13. PROPAVAN [Concomitant]
     Active Substance: PROPIOMAZINE
     Indication: SOMNOLENCE
     Dosage: 25 MG, PRN
     Route: 065
     Dates: start: 20141117

REACTIONS (2)
  - Fall [Unknown]
  - Ankle fracture [Recovered/Resolved]

NARRATIVE: CASE EVENT DATE: 20150605
